FAERS Safety Report 4957038-5 (Version None)
Quarter: 2006Q1

REPORT INFORMATION
  Report Type: 
  Country: None (occurrence: None)
  Receive Date: 20060323
  Receipt Date: 20060313
  Transmission Date: 20060701
  Serious: Yes (Hospitalization)
  Sender: FDA-Public Use
  Company Number: AZAUS200600093

PATIENT
  Age: 58 Year
  Sex: Male
  Weight: 78.0187 kg

DRUGS (4)
  1. VIDAZA [Suspect]
     Indication: MYELODYSPLASTIC SYNDROME
     Dosage: 75 MG/M2 (140 MG), SUBCUTANEOUS
     Route: 058
     Dates: start: 20060206, end: 20060214
  2. ACETAMINOPHEN/CODEINE #3 (GALENIC/PARACETAMOL/CODEINE/) [Concomitant]
  3. PROCHLORPERAZINE MALEATE [Concomitant]
  4. IPRATROPIUM/ALBUTEROL (SALBUTAMOL W/IPRATROPIUM) [Concomitant]

REACTIONS (4)
  - COLITIS [None]
  - ILEUS [None]
  - INTESTINAL OBSTRUCTION [None]
  - PANCREATITIS [None]
